FAERS Safety Report 14857488 (Version 1)
Quarter: 2018Q2

REPORT INFORMATION
  Report Type: Spontaneous
  Country: US (occurrence: US)
  Receive Date: 20180508
  Receipt Date: 20180508
  Transmission Date: 20180711
  Serious: No
  Sender: FDA-Public Use
  Company Number: US-RADIUS HEALTH INC.-2018US000441

PATIENT
  Sex: Female

DRUGS (1)
  1. TYMLOS [Suspect]
     Active Substance: ABALOPARATIDE
     Indication: OSTEOPOROSIS POSTMENOPAUSAL
     Dosage: 80 MCG, ONCE A DAY
     Route: 058
     Dates: start: 201801, end: 201803

REACTIONS (9)
  - Pain [Not Recovered/Not Resolved]
  - Adverse event [Unknown]
  - Pain in extremity [Recovering/Resolving]
  - Mobility decreased [Recovering/Resolving]
  - Sleep disorder [Recovering/Resolving]
  - Arthralgia [Recovering/Resolving]
  - Bone pain [Recovering/Resolving]
  - Headache [Recovered/Resolved]
  - Pain [Recovering/Resolving]
